FAERS Safety Report 9629876 (Version 5)
Quarter: 2014Q2

REPORT INFORMATION
  Report Type: Report from Study
  Country: US (occurrence: US)
  Receive Date: 20131017
  Receipt Date: 20140421
  Transmission Date: 20141212
  Serious: Yes (Hospitalization, Other)
  Sender: FDA-Public Use
  Company Number: US-BRISTOL-MYERS SQUIBB COMPANY-19510783

PATIENT
  Age: 58 Year
  Sex: Male

DRUGS (11)
  1. NIVOLUMAB [Suspect]
     Indication: MALIGNANT MELANOMA
     Dosage: 82MG,MOST RECENT DOSE:14NOV13(CYCLE 15)
     Route: 042
     Dates: start: 20120110
  2. IPILIMUMAB [Suspect]
     Indication: MALIGNANT MELANOMA
     Dosage: TOTAL DAILY DOSE:245MG,MOST RECENT DOSE:14NOV13(CYCLE 15)
     Route: 042
     Dates: start: 20120110
  3. VITAMIN D [Concomitant]
     Dosage: TABS,1DF = 1000 UNITS
     Route: 048
  4. TEMOVATE [Concomitant]
     Dosage: CREAM?STRENGTH:0.05%
     Route: 061
  5. LOVENOX [Concomitant]
     Dosage: 80MG/0.8 ML INJECT 0.8 MLS
     Route: 058
  6. PREDNISONE [Concomitant]
     Dosage: 10MG,DAILY:03OCT13,DECREASED TO 7.5MG:23OCT13,DECREASED TO5MG:07NOV13
     Route: 048
     Dates: start: 20130110
  7. PROTONIX [Concomitant]
     Dosage: DELAYED RELEASE,40MG TAB AT 6AM
     Route: 048
  8. DEXAMETHASONE [Concomitant]
     Dosage: IV PUSH OR IM,DOSE: 10MG OR LESS
     Route: 042
  9. RINGERS SOLUTION, LACTATED [Concomitant]
     Dosage: ONCE
     Route: 042
  10. ONDANSETRON [Concomitant]
     Dosage: ONDANSETRON(PF),IV PUSH,ONCE
     Route: 042
  11. POTASSIUM CHLORIDE [Concomitant]
     Dosage: ONCE
     Route: 042

REACTIONS (5)
  - Adrenal insufficiency [Recovered/Resolved]
  - Nausea [Recovered/Resolved]
  - Vomiting [Recovered/Resolved]
  - Decreased appetite [Not Recovered/Not Resolved]
  - Fatigue [Not Recovered/Not Resolved]
